FAERS Safety Report 10222833 (Version 1)
Quarter: 2014Q2

REPORT INFORMATION
  Report Type: Spontaneous
  Country: US (occurrence: None)
  Receive Date: 20140606
  Receipt Date: 20140606
  Transmission Date: 20141212
  Serious: No
  Sender: FDA-Public Use
  Company Number: None

PATIENT
  Age: 64 Year
  Sex: Male
  Weight: 78.6 kg

DRUGS (1)
  1. IOHEXOL [Suspect]
     Dates: start: 20140508, end: 20140508

REACTIONS (3)
  - Rash [None]
  - Urticaria [None]
  - Pruritus [None]
